FAERS Safety Report 4574445-3 (Version None)
Quarter: 2005Q1

REPORT INFORMATION
  Report Type: 
  Country: None (occurrence: None)
  Receive Date: 20050208
  Receipt Date: 20010824
  Transmission Date: 20050727
  Serious: Yes (Disabling)
  Sender: FDA-Public Use
  Company Number: US-GLAXOSMITHKLINE-A0352256A

PATIENT
  Sex: Male
  Weight: 97.7 kg

DRUGS (2)
  1. PAXIL [Suspect]
     Indication: DEPRESSION
     Route: 048
     Dates: start: 19950922
  2. PRILOSEC [Concomitant]
     Dosage: 20MG PER DAY
     Route: 048
     Dates: start: 19950830

REACTIONS (4)
  - AGGRESSION [None]
  - DRUG WITHDRAWAL SYNDROME [None]
  - HEADACHE [None]
  - INSOMNIA [None]
